FAERS Safety Report 19764869 (Version 1)
Quarter: 2021Q3

REPORT INFORMATION
  Report Type: Not Available
  Country: None (occurrence: None)
  Receive Date: 20210830
  Receipt Date: 20210830
  Transmission Date: 20211014
  Serious: No
  Sender: FDA-Public Use
  Company Number: US-AKORN-170235

PATIENT
  Sex: Female

DRUGS (1)
  1. FENTANYL CITRATE INJECTION CII [Suspect]
     Active Substance: FENTANYL CITRATE

REACTIONS (2)
  - Illness [Recovered/Resolved]
  - Procedural vomiting [Recovered/Resolved]

NARRATIVE: CASE EVENT DATE: 20210622
